FAERS Safety Report 6727185-6 (Version None)
Quarter: 2010Q2

REPORT INFORMATION
  Report Type: 
  Country: None (occurrence: None)
  Receive Date: 20100512
  Receipt Date: 20100118
  Transmission Date: 20101027
  Serious: No
  Sender: FDA-Public Use
  Company Number: 1000011312

PATIENT
  Age: 57 Year
  Sex: Female

DRUGS (15)
  1. SAVELLA [Suspect]
     Indication: FIBROMYALGIA
     Dosage: 12.5 MG (12.5 MG,1 IN 1 D),ORAL; 25 MG (12.5 MG,2 IN 1 D),ORAL;50 MG (25 MG,2 IN 1 D),ORAL
     Route: 048
     Dates: start: 20091210, end: 20091211
  2. SAVELLA [Suspect]
     Indication: FIBROMYALGIA
     Dosage: 12.5 MG (12.5 MG,1 IN 1 D),ORAL; 25 MG (12.5 MG,2 IN 1 D),ORAL;50 MG (25 MG,2 IN 1 D),ORAL
     Route: 048
     Dates: start: 20091212, end: 20091215
  3. SAVELLA [Suspect]
     Indication: FIBROMYALGIA
     Dosage: 12.5 MG (12.5 MG,1 IN 1 D),ORAL; 25 MG (12.5 MG,2 IN 1 D),ORAL;50 MG (25 MG,2 IN 1 D),ORAL
     Route: 048
     Dates: start: 20091216, end: 20091223
  4. SAVELLA [Suspect]
     Indication: FIBROMYALGIA
     Dosage: 100 MG (50 MG,2 IN 1 D0,ORAL
     Route: 048
     Dates: start: 20091224, end: 20100104
  5. NEURONTIN [Concomitant]
  6. GEODON [Concomitant]
  7. DARVOCET [Concomitant]
  8. FENTANYL [Concomitant]
  9. XANAX [Concomitant]
  10. AMBIEN [Concomitant]
  11. ZOLOFT [Concomitant]
  12. ZYRTEC [Concomitant]
  13. VITAMIN D [Concomitant]
  14. FISH OIL [Concomitant]
  15. M.V.I. [Concomitant]

REACTIONS (3)
  - NAUSEA [None]
  - PRURITUS [None]
  - URTICARIA [None]
